FAERS Safety Report 11231902 (Version 4)
Quarter: 2015Q3

REPORT INFORMATION
  Report Type: Report from Study
  Country: JP (occurrence: JP)
  Receive Date: 20150701
  Receipt Date: 20150901
  Transmission Date: 20151125
  Serious: Yes (Death)
  Sender: FDA-Public Use
  Company Number: JP-OTSUKA-2015_004486

PATIENT

DRUGS (8)
  1. ALBUMIN [Concomitant]
     Active Substance: ALBUMIN (HUMAN)
     Indication: HYPOALBUMINAEMIA
  2. SOLACET D [Concomitant]
     Indication: PRODUCT USED FOR UNKNOWN INDICATION
     Dosage: 500 ML/DAY
     Route: 042
     Dates: start: 20150501, end: 20150505
  3. ISOLEUCINE W/LEUCINE/VALINE [Concomitant]
     Active Substance: ISOLEUCINE\LEUCINE\VALINE
     Indication: PRODUCT USED FOR UNKNOWN INDICATION
     Dosage: 4.15 G/DAY
     Route: 048
     Dates: end: 20150505
  4. TOLVAPTAN [Suspect]
     Active Substance: TOLVAPTAN
     Indication: OEDEMA DUE TO HEPATIC DISEASE
     Dosage: 3.75 MG, QD
     Route: 048
     Dates: start: 20150421, end: 20150505
  5. ALBUMIN [Concomitant]
     Active Substance: ALBUMIN (HUMAN)
     Indication: OEDEMA DUE TO HEPATIC DISEASE
     Dosage: 100 ML/DAY
     Route: 042
     Dates: start: 20150421, end: 20150423
  6. FUROSEMIDE. [Concomitant]
     Active Substance: FUROSEMIDE
     Indication: FLUID RETENTION
     Dosage: 20 MG/DAY
     Route: 048
     Dates: end: 20150505
  7. ALDACTONE A [Concomitant]
     Active Substance: SPIRONOLACTONE
     Indication: FLUID RETENTION
     Dosage: 25 MG/DAY
     Route: 048
     Dates: end: 20150505
  8. AMINOLEBAN [Concomitant]
     Active Substance: AMINO ACIDS
     Indication: PRODUCT USED FOR UNKNOWN INDICATION
     Dosage: 500 ML/DAY
     Route: 042
     Dates: start: 20150501, end: 20150505

REACTIONS (1)
  - Hepatocellular carcinoma [Fatal]

NARRATIVE: CASE EVENT DATE: 20150505
